FAERS Safety Report 8059517-3 (Version None)
Quarter: 2012Q1

REPORT INFORMATION
  Report Type: 
  Country: None (occurrence: None)
  Receive Date: 20120120
  Receipt Date: 20120116
  Transmission Date: 20120608
  Serious: Yes (Death)
  Sender: FDA-Public Use
  Company Number: GB-ROCHE-1031609

PATIENT
  Sex: Female

DRUGS (10)
  1. ASPIRIN [Concomitant]
  2. TEMAZEPAM [Concomitant]
  3. MOVIPREP [Concomitant]
  4. RAMIPRIL [Concomitant]
  5. ISOSORBIDE MONONITRATE [Concomitant]
  6. LUCENTIS [Suspect]
     Indication: CHOROIDAL NEOVASCULARISATION
     Route: 050
     Dates: start: 20090209
  7. CO-TENIDONE [Concomitant]
  8. LANSOPRAZOLE [Concomitant]
  9. LACTULOSE [Concomitant]
  10. ALBUTEROL SULFATE AUTOHALER [Concomitant]

REACTIONS (2)
  - DEATH [None]
  - HYPERTENSION [None]
